FAERS Safety Report 7520106-8 (Version None)
Quarter: 2011Q2

REPORT INFORMATION
  Report Type: 
  Country: None (occurrence: None)
  Receive Date: 20110602
  Receipt Date: 20110526
  Transmission Date: 20111010
  Serious: Yes (Life-Threatening)
  Sender: FDA-Public Use
  Company Number: FR-ROCHE-779788

PATIENT
  Sex: Female

DRUGS (12)
  1. MIRCERA [Suspect]
     Dosage: 360 UG/0.6 ML, INJECTABLE SOLUTION
     Route: 042
     Dates: start: 20110226, end: 20110423
  2. FOLIC ACID [Concomitant]
  3. EZETIMIBE [Concomitant]
     Route: 048
  4. LASIX [Concomitant]
     Dosage: DRUG NAME: LASILIX SPECIAL
     Route: 048
  5. ACETAMINOPHEN [Concomitant]
     Indication: PAIN
     Dosage: IF REQUIRED
  6. ATENOLOL [Concomitant]
     Route: 048
  7. MEDIATENSYL [Concomitant]
     Route: 048
  8. REPAGLINIDE [Concomitant]
     Route: 048
  9. CINACALCET HYDROCHLORIDE [Concomitant]
  10. ASPIRIN [Concomitant]
     Dosage: KARDEGIC 75
  11. RENAGEL [Concomitant]
     Dosage: DRUG NAME: RENAGEL 800
  12. ACETAMINOPHEN AND TRAMADOL HCL [Concomitant]

REACTIONS (1)
  - CIRCULATORY COLLAPSE [None]
